FAERS Safety Report 4917081-9 (Version None)
Quarter: 2006Q1

REPORT INFORMATION
  Report Type: 
  Country: None (occurrence: None)
  Receive Date: 20060214
  Receipt Date: 20060131
  Transmission Date: 20060701
  Serious: Yes (Life-Threatening, Hospitalization)
  Sender: FDA-Public Use
  Company Number: A-CH2006-11465

PATIENT
  Age: 67 Year
  Sex: Female
  Weight: 52 kg

DRUGS (7)
  1. TRACLEER [Suspect]
     Indication: PULMONARY HYPERTENSION
     Dosage: 62.5 MG, BID, ORAL  :  125 MG, BID, ORAL
     Route: 048
     Dates: start: 20050401, end: 20050501
  2. TRACLEER [Suspect]
     Indication: PULMONARY HYPERTENSION
     Dosage: 62.5 MG, BID, ORAL  :  125 MG, BID, ORAL
     Route: 048
     Dates: start: 20050501, end: 20050701
  3. PREDNISOLONE [Concomitant]
  4. FONZYLANE (BUFLOMEDIL HYDROCHLORIDE) [Concomitant]
  5. LEVOTHYROXINE SODIUM [Concomitant]
  6. CALCIDOSE (CALCIUM CARBONATE) [Concomitant]
  7. ORACILLINE (PHENOXYMETHYLPENICILLIN) [Concomitant]

REACTIONS (5)
  - ABDOMINAL PAIN [None]
  - GENERAL PHYSICAL HEALTH DETERIORATION [None]
  - METABOLIC ACIDOSIS [None]
  - RENAL FAILURE [None]
  - VOMITING [None]
